FAERS Safety Report 12817332 (Version 1)
Quarter: 2016Q4

REPORT INFORMATION
  Report Type: Report from Study
  Country: US (occurrence: US)
  Receive Date: 20161006
  Receipt Date: 20161006
  Transmission Date: 20170207
  Serious: Yes (Other)
  Sender: FDA-Public Use
  Company Number: US-ROCHE-1836587

PATIENT
  Age: 69 Year
  Sex: Female
  Weight: 61.4 kg

DRUGS (4)
  1. VELIPARIB [Suspect]
     Active Substance: VELIPARIB
     Indication: OVARIAN EPITHELIAL CANCER
     Dosage: 10/NOV/2011, 15/DEC/2011, 19/JAN/2012, 08/FEB/2012, 29/FEB/2012, 21/MAR/2012, 11/APR/2012, 02/MAY/20
     Route: 048
     Dates: start: 20110829
  2. VELIPARIB [Suspect]
     Active Substance: VELIPARIB
     Dosage: 19/JAN/2012, 08/FEB/2012, 29/FEB/2012, 21/MAR/2012, 11/APR/2012, 02/MAY/2012, 25/MAY/2012, 20/JUN/20
     Route: 048
  3. BEVACIZUMAB [Suspect]
     Active Substance: BEVACIZUMAB
     Indication: OVARIAN EPITHELIAL CANCER
     Dosage: 19/SEP/2011, 10/OCT/2011, 10/NOV/2011, 15/DEC/2011, 19/JAN/2012, 08/FEB/2012, 29/FEB/2012, 21/MAR/20
     Route: 042
     Dates: start: 20110829
  4. VELIPARIB [Suspect]
     Active Substance: VELIPARIB
     Dosage: 10/OCT/2011
     Route: 048
     Dates: start: 20110919

REACTIONS (4)
  - Neutrophil count decreased [Unknown]
  - Platelet count decreased [Unknown]
  - White blood cell count decreased [Unknown]
  - Blood bilirubin increased [Unknown]
